FAERS Safety Report 9091377 (Version 1)
Quarter: 2013Q1

REPORT INFORMATION
  Report Type: Spontaneous
  Country: US (occurrence: US)
  Receive Date: 20130201
  Receipt Date: 20130201
  Transmission Date: 20140127
  Serious: No
  Sender: FDA-Public Use
  Company Number: US-GALDERMA-US-GDP-12412777

PATIENT
  Age: 13 Year
  Sex: Female
  Weight: 61 kg

DRUGS (1)
  1. EPIDUO (ADAPALENE) [Suspect]
     Indication: ACNE
     Route: 061
     Dates: start: 20111222, end: 20120101

REACTIONS (3)
  - Skin erosion [Recovered/Resolved]
  - Skin hyperpigmentation [Recovering/Resolving]
  - Skin burning sensation [Recovered/Resolved]
